FAERS Safety Report 8296641-4 (Version None)
Quarter: 2012Q2

REPORT INFORMATION
  Report Type: 
  Country: None (occurrence: None)
  Receive Date: 20120418
  Receipt Date: 20120418
  Transmission Date: 20120825
  Serious: Yes (Other)
  Sender: FDA-Public Use
  Company Number: None

PATIENT
  Sex: Female
  Weight: 81.646 kg

DRUGS (1)
  1. RESTASIS [Suspect]
     Indication: DRY EYE
     Dosage: 1 DROP EACH EYE
     Route: 047
     Dates: start: 20111015, end: 20111130

REACTIONS (2)
  - DISTURBANCE IN SEXUAL AROUSAL [None]
  - DRUG INTERACTION [None]
